FAERS Safety Report 11647077 (Version 3)
Quarter: 2015Q4

REPORT INFORMATION
  Report Type: Spontaneous
  Country: US (occurrence: US)
  Receive Date: 20151021
  Receipt Date: 20151102
  Transmission Date: 20160304
  Serious: Yes (Hospitalization)
  Sender: FDA-Public Use
  Company Number: US-AMGEN-USASL2015109871

PATIENT
  Age: 58 Year
  Sex: Female

DRUGS (2)
  1. FORTEO [Concomitant]
     Active Substance: TERIPARATIDE
     Dosage: UNK
  2. ENBREL [Suspect]
     Active Substance: ETANERCEPT
     Indication: RHEUMATOID ARTHRITIS
     Dosage: 50 MG, QWK
     Route: 065
     Dates: start: 201311

REACTIONS (4)
  - Spinal fusion surgery [Unknown]
  - Nerve compression [Unknown]
  - Blood calcium increased [Unknown]
  - Surgery [Unknown]

NARRATIVE: CASE EVENT DATE: 20150910
